FAERS Safety Report 5585460-5 (Version None)
Quarter: 2008Q1

REPORT INFORMATION
  Report Type: 
  Country: None (occurrence: None)
  Receive Date: 20080104
  Receipt Date: 20080104
  Transmission Date: 20080703
  Serious: Yes (Other)
  Sender: FDA-Public Use
  Company Number: None

PATIENT
  Age: 59 Year
  Sex: Female
  Weight: 68.0396 kg

DRUGS (1)
  1. OXYBUTININ CH   15MG TABLET   UNKNOWN -MYLA?- [Suspect]
     Indication: BLADDER SPASM
     Dosage: ONE TABLET  AT NIGHT  PO
     Route: 048
     Dates: start: 20071019, end: 20071024

REACTIONS (3)
  - BLADDER SPASM [None]
  - CONDITION AGGRAVATED [None]
  - THERAPEUTIC RESPONSE UNEXPECTED WITH DRUG SUBSTITUTION [None]
